FAERS Safety Report 23638685 (Version 2)
Quarter: 2024Q1

REPORT INFORMATION
  Report Type: Spontaneous
  Country: SE (occurrence: SE)
  Receive Date: 20240315
  Receipt Date: 20240327
  Transmission Date: 20240409
  Serious: Yes (Hospitalization, Other)
  Sender: FDA-Public Use
  Company Number: SE-AstraZeneca-2024A053100

PATIENT
  Age: 21 Year
  Sex: Female

DRUGS (2)
  1. BUDESONIDE\FORMOTEROL [Suspect]
     Active Substance: BUDESONIDE\FORMOTEROL
     Indication: Product used for unknown indication
     Dosage: UNK
     Route: 055
  2. TEZSPIRE [Suspect]
     Active Substance: TEZEPELUMAB-EKKO
     Indication: Product used for unknown indication
     Dosage: UNK
     Route: 065

REACTIONS (11)
  - Asthma [Recovering/Resolving]
  - COVID-19 [Unknown]
  - Influenza [Unknown]
  - Nasopharyngitis [Unknown]
  - Fatigue [Unknown]
  - Gastritis [Recovering/Resolving]
  - Acne [Recovering/Resolving]
  - Obesity [Recovering/Resolving]
  - Seasonal allergy [Unknown]
  - Osteopenia [Recovering/Resolving]
  - Off label use [Unknown]
